FAERS Safety Report 16776537 (Version 2)
Quarter: 2019Q4

REPORT INFORMATION
  Report Type: Report from Study
  Country: None (occurrence: US)
  Receive Date: 20190905
  Receipt Date: 20191003
  Transmission Date: 20200122
  Serious: Yes (Hospitalization, Other)
  Sender: FDA-Public Use
  Company Number: US-ABBVIE-19K-163-2910860-00

PATIENT
  Age: 40 Year
  Sex: Female
  Weight: 86.26 kg

DRUGS (2)
  1. HUMIRA [Suspect]
     Active Substance: ADALIMUMAB
     Indication: PSORIASIS
  2. HUMIRA [Suspect]
     Active Substance: ADALIMUMAB
     Indication: PSORIATIC ARTHROPATHY
     Route: 058
     Dates: start: 2015

REACTIONS (4)
  - Spinal compression fracture [Recovered/Resolved]
  - Lumbar spinal stenosis [Recovered/Resolved]
  - Exostosis [Recovered/Resolved]
  - Sciatic nerve injury [Recovered/Resolved]

NARRATIVE: CASE EVENT DATE: 201710
